FAERS Safety Report 23118306 (Version 2)
Quarter: 2023Q4

REPORT INFORMATION
  Report Type: Spontaneous
  Country: IN (occurrence: IN)
  Receive Date: 20231028
  Receipt Date: 20231107
  Transmission Date: 20240109
  Serious: Yes (Life-Threatening, Hospitalization, Other)
  Sender: FDA-Public Use
  Company Number: IN-MACLEODS PHARMACEUTICALS US LTD-MAC2023043990

PATIENT

DRUGS (1)
  1. LOSARTAN [Suspect]
     Active Substance: LOSARTAN
     Indication: Product used for unknown indication
     Dosage: 50 MILLIGRAM, QD, EVERY EVENING
     Route: 048

REACTIONS (4)
  - Acute respiratory failure [Recovering/Resolving]
  - Pulmonary congestion [Recovering/Resolving]
  - Anaphylactic reaction [Recovering/Resolving]
  - Angioedema [Recovering/Resolving]
